FAERS Safety Report 14216120 (Version 1)
Quarter: 2017Q4

REPORT INFORMATION
  Report Type: Spontaneous
  Country: US (occurrence: US)
  Receive Date: 20171122
  Receipt Date: 20171122
  Transmission Date: 20180321
  Serious: Yes (Other)
  Sender: FDA-Public Use
  Company Number: US-LUNDBECK-DKLU2040315

PATIENT
  Age: 70 Year
  Sex: Male

DRUGS (2)
  1. NORTHERA [Suspect]
     Active Substance: DROXIDOPA
     Indication: ORTHOSTATIC HYPOTENSION
  2. NORTHERA [Suspect]
     Active Substance: DROXIDOPA
     Indication: PARKINSON^S DISEASE
     Dosage: SCHEDULE B AND TITRATING
     Route: 048
     Dates: start: 20171117

REACTIONS (5)
  - Blood pressure decreased [Recovering/Resolving]
  - Peripheral coldness [Not Recovered/Not Resolved]
  - Skin discolouration [Recovering/Resolving]
  - Loss of consciousness [Recovered/Resolved]
  - Depressed level of consciousness [Recovered/Resolved]

NARRATIVE: CASE EVENT DATE: 20171117
